FAERS Safety Report 23426489 (Version 1)
Quarter: 2024Q1

REPORT INFORMATION
  Report Type: Spontaneous
  Country: LV (occurrence: LV)
  Receive Date: 20240122
  Receipt Date: 20240122
  Transmission Date: 20240410
  Serious: Yes (Death, Hospitalization, Other)
  Sender: FDA-Public Use
  Company Number: LV-STRIDES ARCOLAB LIMITED-2024SP000735

PATIENT
  Sex: Female

DRUGS (7)
  1. TACROLIMUS [Suspect]
     Active Substance: TACROLIMUS
     Indication: Product used for unknown indication
     Dosage: UNK
     Route: 064
  2. AZATHIOPRINE [Suspect]
     Active Substance: AZATHIOPRINE
     Indication: Product used for unknown indication
     Dosage: UNK
     Route: 064
  3. URSODIOL [Suspect]
     Active Substance: URSODIOL
     Indication: Product used for unknown indication
     Dosage: UNK
     Route: 064
  4. VITAMIN D [Suspect]
     Active Substance: VITAMIN D NOS
     Indication: Product used for unknown indication
     Dosage: UNK
     Route: 064
  5. CALCIUM [Suspect]
     Active Substance: CALCIUM
     Indication: Product used for unknown indication
     Dosage: UNK
     Route: 064
  6. METHYLPREDNISOLONE [Suspect]
     Active Substance: METHYLPREDNISOLONE
     Indication: Product used for unknown indication
     Dosage: UNK (THE PATIENT^S MOTHER RECEIVED 32MG DAILY ORALLY FOR AUTOIMMUNE HEPATITIS RELPASE)
     Route: 064
  7. METHYLPREDNISOLONE [Suspect]
     Active Substance: METHYLPREDNISOLONE
     Dosage: UNK (THE PATIENT^S MOTHER RECEIVED 500MG IV FOR 3 DAYS FOR AUTOIMMUNE HEPATITIS RELAPSE)
     Route: 064

REACTIONS (8)
  - Neonatal respiratory distress syndrome [Fatal]
  - Foetal distress syndrome [Fatal]
  - Hyperbilirubinaemia neonatal [Fatal]
  - Intraventricular haemorrhage neonatal [Fatal]
  - Anaemia neonatal [Fatal]
  - Premature baby [Fatal]
  - Low birth weight baby [Fatal]
  - Foetal exposure during pregnancy [Unknown]
